FAERS Safety Report 9604371 (Version 1)
Quarter: 2013Q4

REPORT INFORMATION
  Report Type: Spontaneous
  Country: NL (occurrence: NL)
  Receive Date: 20131008
  Receipt Date: 20131008
  Transmission Date: 20140711
  Serious: Yes (Hospitalization, Other)
  Sender: FDA-Public Use
  Company Number: PHHY2013NL109615

PATIENT
  Age: 44 Year
  Sex: Male

DRUGS (8)
  1. CLOZAPINE [Suspect]
     Dosage: 300 MG, DAILY
  2. CLOZAPINE [Suspect]
     Dosage: 50 MG, DAILY
  3. LITHIUM [Concomitant]
     Indication: GASTROINTESTINAL DISORDER
     Dosage: 1000 MG, DAILY
  4. LITHIUM [Concomitant]
     Dosage: 400 MG, DAILY
  5. LITHIUM [Concomitant]
     Dosage: 800 MG, DAILY
  6. OMEPRAZOLE [Concomitant]
     Indication: GASTROINTESTINAL DISORDER
     Dosage: 20 MG, DAILY
  7. RISPERIDONE [Concomitant]
     Dosage: 25 MG, BIW (DEPOT)
  8. PAROXETINE [Concomitant]
     Dosage: 10 MG, DAILY

REACTIONS (23)
  - Poisoning [Recovering/Resolving]
  - Dyspnoea [Recovering/Resolving]
  - Cough [Recovering/Resolving]
  - Abdominal pain [Recovering/Resolving]
  - Respiratory rate increased [Recovering/Resolving]
  - Breath sounds abnormal [Recovering/Resolving]
  - Abdominal distension [Recovering/Resolving]
  - Abdominal tenderness [Recovering/Resolving]
  - C-reactive protein increased [Recovering/Resolving]
  - Blood creatinine increased [Recovering/Resolving]
  - Intestinal dilatation [Recovering/Resolving]
  - Alanine aminotransferase increased [Recovered/Resolved]
  - Aspartate aminotransferase increased [Recovered/Resolved]
  - Antipsychotic drug level increased [Recovering/Resolving]
  - Ileus paralytic [Recovering/Resolving]
  - Somnolence [Recovering/Resolving]
  - Blood pressure increased [Recovered/Resolved]
  - Nausea [Recovering/Resolving]
  - Vomiting [Recovering/Resolving]
  - Heart rate increased [Recovering/Resolving]
  - Diarrhoea [Recovering/Resolving]
  - Pneumonia [Recovering/Resolving]
  - Blood glucose abnormal [Recovering/Resolving]
